FAERS Safety Report 9469414 (Version 1)
Quarter: 2013Q3

REPORT INFORMATION
  Report Type: Spontaneous
  Country: US (occurrence: US)
  Receive Date: 20130822
  Receipt Date: 20130822
  Transmission Date: 20140515
  Serious: No
  Sender: FDA-Public Use
  Company Number: US-B.I. PHARMACEUTICALS,INC./RIDGEFIELD-2013-BI-24385BP

PATIENT
  Sex: Female

DRUGS (10)
  1. PRADAXA [Suspect]
     Indication: PRODUCT USED FOR UNKNOWN INDICATION
  2. TIKOSYN [Suspect]
     Dosage: 500 MG
  3. ASPIRIN [Concomitant]
     Dosage: STRENGTH: 81
  4. CITALOPRAM [Concomitant]
     Dosage: STRENGTH: 100
  5. KLOR-CON [Concomitant]
  6. LASIX [Concomitant]
     Dosage: STRENGTH: 20
  7. LISINOPRIL [Concomitant]
  8. PRAVACHOL [Concomitant]
  9. ZEBETA [Concomitant]
  10. OMEPRAZOLE [Concomitant]

REACTIONS (1)
  - Cardiac disorder [Unknown]
